FAERS Safety Report 9892869 (Version 1)
Quarter: 2014Q1

REPORT INFORMATION
  Report Type: Spontaneous
  Country: US (occurrence: US)
  Receive Date: 20140213
  Receipt Date: 20140213
  Transmission Date: 20141002
  Serious: No
  Sender: FDA-Public Use
  Company Number: US-009507513-1402USA004672

PATIENT
  Sex: Female

DRUGS (1)
  1. ZETIA [Suspect]
     Indication: LIPIDS ABNORMAL
     Route: 048

REACTIONS (1)
  - Lipids abnormal [Unknown]
